FAERS Safety Report 15485456 (Version 2)
Quarter: 2018Q4

REPORT INFORMATION
  Report Type: Spontaneous
  Country: CO (occurrence: CO)
  Receive Date: 20181010
  Receipt Date: 20181025
  Transmission Date: 20190205
  Serious: Yes (Death, Hospitalization)
  Sender: FDA-Public Use
  Company Number: PHHY2018CO120013

PATIENT
  Age: 54 Year
  Sex: Female

DRUGS (17)
  1. LEVOTHYROXINE. [Suspect]
     Active Substance: LEVOTHYROXINE
     Indication: PRODUCT USED FOR UNKNOWN INDICATION
     Dosage: UNK
     Route: 065
  2. ACETIN (ACETYLSALICYLIC ACID) [Suspect]
     Active Substance: ASPIRIN
     Indication: PRODUCT USED FOR UNKNOWN INDICATION
     Dosage: UNK
     Route: 065
  3. CEFTRIAXONE. [Concomitant]
     Active Substance: CEFTRIAXONE
     Indication: CLOSTRIDIUM DIFFICILE INFECTION
     Dosage: UNK
     Route: 065
  4. VANCOMYCIN [Concomitant]
     Active Substance: VANCOMYCIN
     Indication: CAMPYLOBACTER INFECTION
  5. CEFTRIAXONE. [Concomitant]
     Active Substance: CEFTRIAXONE
     Indication: SHIGELLA INFECTION
  6. VERAPAMIL [Suspect]
     Active Substance: VERAPAMIL HYDROCHLORIDE
     Indication: PRODUCT USED FOR UNKNOWN INDICATION
     Dosage: UNK
     Route: 065
  7. VANCOMYCIN [Concomitant]
     Active Substance: VANCOMYCIN
     Indication: CLOSTRIDIUM DIFFICILE INFECTION
     Dosage: UNK
     Route: 048
  8. METIZOL [Concomitant]
     Indication: SHIGELLA INFECTION
  9. METIZOL [Concomitant]
     Indication: CLOSTRIDIUM DIFFICILE INFECTION
     Dosage: UNK
     Route: 065
  10. PIPERACILLIN AND TAZOBACTAM [Suspect]
     Active Substance: PIPERACILLIN SODIUM\TAZOBACTAM SODIUM
     Indication: PRODUCT USED FOR UNKNOWN INDICATION
     Dosage: UNK
     Route: 065
  11. METIZOL [Concomitant]
     Indication: SALMONELLOSIS
  12. ATORVASTATIN [Suspect]
     Active Substance: ATORVASTATIN
     Indication: PRODUCT USED FOR UNKNOWN INDICATION
     Dosage: UNK
     Route: 065
  13. CEFTRIAXONE. [Concomitant]
     Active Substance: CEFTRIAXONE
     Indication: SALMONELLOSIS
  14. CEFTRIAXONE. [Concomitant]
     Active Substance: CEFTRIAXONE
     Indication: CAMPYLOBACTER INFECTION
  15. VANCOMYCIN [Concomitant]
     Active Substance: VANCOMYCIN
     Indication: SALMONELLOSIS
  16. VANCOMYCIN [Concomitant]
     Active Substance: VANCOMYCIN
     Indication: SHIGELLA INFECTION
  17. METIZOL [Concomitant]
     Indication: CAMPYLOBACTER INFECTION

REACTIONS (23)
  - Pyrexia [Unknown]
  - Acute kidney injury [Unknown]
  - Hypoperfusion [Unknown]
  - Cholangitis [Unknown]
  - Megacolon [Unknown]
  - Crohn^s disease [Unknown]
  - Abdominal pain [Unknown]
  - Thrombocytopenia [Unknown]
  - Ocular icterus [Unknown]
  - Metabolic acidosis [Unknown]
  - Dyspnoea [Unknown]
  - Pulmonary embolism [Fatal]
  - Hyperlactacidaemia [Unknown]
  - Anuria [Unknown]
  - Tremor [Unknown]
  - Neutrophilia [Unknown]
  - Septic shock [Unknown]
  - Renal impairment [Unknown]
  - Asthenia [Unknown]
  - Pyelonephritis [Unknown]
  - Abdominal distension [Unknown]
  - Colitis ulcerative [Unknown]
  - Cardio-respiratory arrest [Unknown]
